FAERS Safety Report 5483200-1 (Version None)
Quarter: 2007Q4

REPORT INFORMATION
  Report Type: 
  Country: None (occurrence: None)
  Receive Date: 20071011
  Receipt Date: 20071002
  Transmission Date: 20080405
  Serious: Yes (Other)
  Sender: FDA-Public Use
  Company Number: BR-PFIZER INC-2007083851

PATIENT
  Sex: Male

DRUGS (5)
  1. LIPITOR [Suspect]
     Indication: BLOOD CHOLESTEROL
     Route: 048
  2. SIMVASTATIN [Suspect]
  3. METICORTEN [Concomitant]
     Dates: start: 20010101
  4. PURAN T4 [Concomitant]
  5. HIDANTAL [Concomitant]

REACTIONS (2)
  - BRAIN NEOPLASM [None]
  - NEOPLASM [None]
